FAERS Safety Report 6277530-3 (Version None)
Quarter: 2009Q3

REPORT INFORMATION
  Report Type: 
  Country: None (occurrence: None)
  Receive Date: 20090722
  Receipt Date: 20090708
  Transmission Date: 20100115
  Serious: Yes (Other)
  Sender: FDA-Public Use
  Company Number: US-PFIZER INC-2009225390

PATIENT
  Sex: Female
  Weight: 66.678 kg

DRUGS (2)
  1. CHANTIX [Suspect]
     Indication: SMOKING CESSATION THERAPY
     Dosage: 1 MG, 2X/DAY
     Route: 048
     Dates: start: 20090401
  2. XANAX [Concomitant]
     Dosage: UNK

REACTIONS (1)
  - HOMICIDAL IDEATION [None]
